FAERS Safety Report 21707995 (Version 3)
Quarter: 2022Q4

REPORT INFORMATION
  Report Type: Spontaneous
  Country: US (occurrence: US)
  Receive Date: 20221209
  Receipt Date: 20221216
  Transmission Date: 20230113
  Serious: No
  Sender: FDA-Public Use
  Company Number: US-Blueprint Medicines Corporation-622

PATIENT
  Sex: Female

DRUGS (1)
  1. AYVAKIT [Suspect]
     Active Substance: AVAPRITINIB
     Indication: Gastrointestinal stromal tumour
     Route: 065
     Dates: start: 20221119

REACTIONS (10)
  - Sinusitis [Unknown]
  - Burning sensation [Unknown]
  - Hyperchlorhydria [Unknown]
  - Eye swelling [Unknown]
  - Swelling face [Unknown]
  - Platelet count decreased [Unknown]
  - Vomiting [Unknown]
  - Periorbital swelling [Unknown]
  - Skin warm [Unknown]
  - Influenza [Unknown]
